FAERS Safety Report 8485325-5 (Version None)
Quarter: 2012Q3

REPORT INFORMATION
  Report Type: 
  Country: None (occurrence: None)
  Receive Date: 20120703
  Receipt Date: 20120628
  Transmission Date: 20120928
  Serious: Yes (Other)
  Sender: FDA-Public Use
  Company Number: US-ROCHE-1056715

PATIENT
  Sex: Male
  Weight: 72.64 kg

DRUGS (3)
  1. ALLEGRA [Concomitant]
     Dates: start: 20000101
  2. ACCUTANE [Suspect]
     Indication: ACNE
     Route: 065
     Dates: start: 20010901, end: 20020201
  3. ACCUTANE [Suspect]
     Route: 065
     Dates: end: 20031201

REACTIONS (5)
  - SUICIDE ATTEMPT [None]
  - CROHN'S DISEASE [None]
  - DYSPEPSIA [None]
  - INFLAMMATORY BOWEL DISEASE [None]
  - IRRITABLE BOWEL SYNDROME [None]
